FAERS Safety Report 9559542 (Version 1)
Quarter: 2013Q3

REPORT INFORMATION
  Report Type: Spontaneous
  Country: US (occurrence: None)
  Receive Date: 20130906
  Receipt Date: 20130906
  Transmission Date: 20140515
  Serious: Yes (Other)
  Sender: FDA-Public Use
  Company Number: 163-POMAL-13073427

PATIENT
  Age: 76 Year
  Sex: Male

DRUGS (9)
  1. POMALYST (POMALIDOMIDE) (CAPSULES) [Suspect]
     Indication: PLASMA CELL MYELOMA
     Route: 048
     Dates: start: 20130624
  2. AUGMENTIN (CLAVULIN) [Concomitant]
  3. CEPHALEXIN (CEFALEXIN) [Concomitant]
  4. FAMOTIDINE (FAMOTIDINE) [Concomitant]
  5. FUROSEMIDE (FUROSEMIDE) [Concomitant]
  6. GABAPENTIN (GABAPENTIN) [Concomitant]
  7. KLOR-CON 10 (POTASSIUM CHLORIDE) [Concomitant]
  8. SIMVASTATIN (SIMVASTATIN) [Concomitant]
  9. TAMSULOSIN HCL (TAMSULOSIN HYDROCHLORIDE) [Concomitant]

REACTIONS (1)
  - Malaise [None]
